FAERS Safety Report 9782364 (Version 2)
Quarter: 2014Q1

REPORT INFORMATION
  Report Type: Spontaneous
  Country: FR (occurrence: FR)
  Receive Date: 20131226
  Receipt Date: 20140314
  Transmission Date: 20141002
  Serious: Yes (Hospitalization)
  Sender: FDA-Public Use
  Company Number: PHHY2013FR150177

PATIENT
  Age: 57 Year
  Sex: Female

DRUGS (15)
  1. MYFORTIC [Suspect]
     Dosage: 2 DF, BID (360MG)GASTRO RESISTANT FILM COATED TABLET
     Route: 048
     Dates: start: 20130609, end: 20130904
  2. MYFORTIC [Suspect]
     Dosage: 1 DF, BID(360MG)
     Route: 048
     Dates: start: 20130904, end: 20131122
  3. MYFORTIC [Suspect]
     Dosage: UNK UKN, UNK
     Route: 048
     Dates: start: 20131126, end: 20131216
  4. MYFORTIC [Suspect]
     Dosage: 180 MG, BID
     Route: 048
     Dates: start: 20140106, end: 20140122
  5. ROVALCYTE [Suspect]
     Indication: PROPHYLAXIS AGAINST TRANSPLANT REJECTION
     Dosage: 450 MG, QD
     Route: 048
     Dates: start: 20130609, end: 20131126
  6. BACTRIM [Suspect]
     Indication: PROPHYLAXIS
     Dosage: UNK UKN, UNK
     Dates: start: 20130609, end: 20130904
  7. ADVAGRAF [Concomitant]
  8. DEPAMIDE [Concomitant]
     Dosage: UNK UKN, UNK
  9. HALDOL [Concomitant]
     Dosage: UNK UKN, UNK
  10. HYPERIUM [Concomitant]
     Dosage: UNK UKN, UNK
  11. INEXIUM//ESOMEPRAZOLE MAGNESIUM [Concomitant]
     Dosage: UNK UKN, UNK
  12. LEVOTHYROX [Concomitant]
     Dosage: UNK UKN, UNK
  13. MIMPARA [Concomitant]
     Dosage: UNK UKN, UNK
  14. TERCIAN [Concomitant]
     Dosage: UNK UKN, UNK
  15. TRANDATE [Concomitant]
     Dosage: UNK UKN, UNK

REACTIONS (1)
  - Febrile neutropenia [Recovered/Resolved]
